FAERS Safety Report 7476336-7 (Version None)
Quarter: 2011Q2

REPORT INFORMATION
  Report Type: 
  Country: None (occurrence: None)
  Receive Date: 20110512
  Receipt Date: 20110503
  Transmission Date: 20111010
  Serious: Yes (Hospitalization)
  Sender: FDA-Public Use
  Company Number: A0788548A

PATIENT
  Age: 63 Year
  Sex: Male

DRUGS (3)
  1. AVANDAMET [Suspect]
     Route: 065
     Dates: start: 20040920, end: 20050101
  2. AVANDIA [Suspect]
     Dosage: 4MG TWICE PER DAY
     Route: 048
     Dates: start: 20031029, end: 20080801
  3. AVANDARYL [Suspect]
     Route: 065
     Dates: start: 20060619, end: 20070401

REACTIONS (5)
  - RENAL FAILURE [None]
  - CARDIOVASCULAR DISORDER [None]
  - ANAEMIA [None]
  - IMPAIRED GASTRIC EMPTYING [None]
  - CARDIAC FAILURE CONGESTIVE [None]
